FAERS Safety Report 9700291 (Version 1)
Quarter: 2013Q4

REPORT INFORMATION
  Report Type: Spontaneous
  Country: US (occurrence: US)
  Receive Date: 20131121
  Receipt Date: 20131121
  Transmission Date: 20140711
  Serious: No
  Sender: FDA-Public Use
  Company Number: US-BAYER-2013-138591

PATIENT
  Sex: Male

DRUGS (6)
  1. LEVITRA [Suspect]
     Indication: ERECTILE DYSFUNCTION
     Dosage: 20 MG, 3 OR 4 TIMES PER MONTH
     Route: 048
     Dates: end: 20131110
  2. GABAPENTIN [Concomitant]
  3. LYRICA [Concomitant]
  4. METHADONE [Concomitant]
  5. BACLOFEN [Concomitant]
  6. ANDROGEL [Concomitant]

REACTIONS (2)
  - Erythema [Recovered/Resolved]
  - Drug ineffective [Recovered/Resolved]
